FAERS Safety Report 8204409-X (Version None)
Quarter: 2012Q1

REPORT INFORMATION
  Report Type: 
  Country: None (occurrence: None)
  Receive Date: 20120313
  Receipt Date: 20120313
  Transmission Date: 20120608
  Serious: No
  Sender: FDA-Public Use
  Company Number: None

PATIENT
  Age: 29 Year
  Sex: Female
  Weight: 70.306 kg

DRUGS (1)
  1. COMPAZINE [Suspect]

REACTIONS (5)
  - CONDITION AGGRAVATED [None]
  - FEELING HOT [None]
  - FEELING ABNORMAL [None]
  - PANIC ATTACK [None]
  - ANXIETY [None]
